FAERS Safety Report 7825080-2 (Version None)
Quarter: 2011Q4

REPORT INFORMATION
  Report Type: 
  Country: None (occurrence: None)
  Receive Date: 20111019
  Receipt Date: 20110711
  Transmission Date: 20120403
  Serious: No
  Sender: FDA-Public Use
  Company Number: US-BRISTOL-MYERS SQUIBB COMPANY-15893423

PATIENT
  Age: 77 Year
  Sex: Male

DRUGS (3)
  1. DILTIAZEM CD [Concomitant]
  2. AVALIDE [Suspect]
     Dosage: 150/12.5MG REDUCED TO DOSE IN HALF 08JUL2011
     Dates: start: 20070104
  3. METOPROLOL SUCCINATE [Concomitant]

REACTIONS (2)
  - DIZZINESS [None]
  - HYPOTENSION [None]
